FAERS Safety Report 5798380-8 (Version None)
Quarter: 2008Q3

REPORT INFORMATION
  Report Type: 
  Country: None (occurrence: None)
  Receive Date: 20080702
  Receipt Date: 20080501
  Transmission Date: 20090109
  Serious: No
  Sender: FDA-Public Use
  Company Number: A0725862A

PATIENT
  Age: 47 Year
  Sex: Female

DRUGS (6)
  1. PARNATE [Suspect]
     Indication: MAJOR DEPRESSION
     Dosage: 40MG PER DAY
     Route: 048
     Dates: start: 19930101, end: 20070101
  2. TRANYLCYPROMINE SULFATE [Suspect]
     Indication: MAJOR DEPRESSION
     Dosage: 40MG PER DAY
     Route: 048
     Dates: start: 20070101
  3. SEROQUEL [Concomitant]
  4. FIORICET [Concomitant]
  5. PHENERGAN HCL [Concomitant]
  6. NORVASC [Concomitant]

REACTIONS (8)
  - BLOOD PRESSURE INCREASED [None]
  - DIZZINESS [None]
  - DYSARTHRIA [None]
  - ERYTHEMA [None]
  - NAUSEA [None]
  - RASH MACULAR [None]
  - SENSORY DISTURBANCE [None]
  - TYRAMINE REACTION [None]
